FAERS Safety Report 22054749 (Version 1)
Quarter: 2023Q1

REPORT INFORMATION
  Report Type: Spontaneous
  Country: ES (occurrence: ES)
  Receive Date: 20230302
  Receipt Date: 20230302
  Transmission Date: 20230417
  Serious: Yes (Death)
  Sender: FDA-Public Use
  Company Number: None

PATIENT
  Age: 71 Year
  Sex: Female
  Weight: 86.8 kg

DRUGS (2)
  1. SCEMBLIX [Suspect]
     Active Substance: ASCIMINIB HYDROCHLORIDE
     Indication: Philadelphia positive acute lymphocytic leukaemia
     Dosage: 200 MG, Q12H (COMPRIMIDOS RECUBIERTOS CON PELICULA, 60 COMPRIMIDOS)
     Route: 048
     Dates: start: 20221222, end: 20230111
  2. SCEMBLIX [Suspect]
     Active Substance: ASCIMINIB HYDROCHLORIDE
     Dosage: 200 MG, Q12H (200 MG CADA 12H)
     Route: 048
     Dates: start: 20230125, end: 20230126

REACTIONS (4)
  - Cystitis klebsiella [Fatal]
  - Haemophilus bacteraemia [Fatal]
  - Febrile neutropenia [Fatal]
  - Pneumonia [Fatal]

NARRATIVE: CASE EVENT DATE: 20230126
